FAERS Safety Report 23728957 (Version 2)
Quarter: 2024Q2

REPORT INFORMATION
  Report Type: Spontaneous
  Country: CN (occurrence: CN)
  Receive Date: 20240410
  Receipt Date: 20240422
  Transmission Date: 20240716
  Serious: Yes (Hospitalization)
  Sender: FDA-Public Use
  Company Number: CN-ROCHE-3539327

PATIENT
  Age: 41 Year
  Sex: Male

DRUGS (4)
  1. GAVRETO [Suspect]
     Active Substance: PRALSETINIB
     Indication: Non-small cell lung cancer
     Route: 048
     Dates: start: 202307
  2. GAVRETO [Suspect]
     Active Substance: PRALSETINIB
     Route: 048
  3. GAVRETO [Suspect]
     Active Substance: PRALSETINIB
     Route: 048
  4. GAVRETO [Suspect]
     Active Substance: PRALSETINIB
     Route: 048

REACTIONS (4)
  - Interstitial lung disease [Recovering/Resolving]
  - Sexual dysfunction [Recovered/Resolved]
  - Hypogeusia [Recovered/Resolved]
  - Hypoaesthesia [Recovered/Resolved]
